FAERS Safety Report 6610093-9 (Version None)
Quarter: 2010Q1

REPORT INFORMATION
  Report Type: 
  Country: None (occurrence: None)
  Receive Date: 20100302
  Receipt Date: 20100224
  Transmission Date: 20100710
  Serious: Yes (Other)
  Sender: FDA-Public Use
  Company Number: JP-SANOFI-AVENTIS-F01200900895

PATIENT
  Age: 59 Year
  Sex: Male
  Weight: 74 kg

DRUGS (6)
  1. CLOPIDOGREL BISULFATE [Suspect]
     Indication: ACUTE CORONARY SYNDROME
     Dosage: DOSE TEXT: STARTING DOSE
     Route: 048
     Dates: start: 20080810, end: 20080810
  2. CLOPIDOGREL BISULFATE [Suspect]
     Dosage: DOSE TEXT: MAINTENANCE DOSE
     Route: 048
     Dates: start: 20080811
  3. ASPIRIN [Concomitant]
     Indication: ACUTE CORONARY SYNDROME
     Route: 048
     Dates: start: 20080810
  4. OMEPRAL [Concomitant]
     Indication: PROPHYLAXIS
     Route: 048
     Dates: start: 20080810
  5. LIPITOR [Concomitant]
     Route: 048
     Dates: start: 20080810
  6. EPADEL [Concomitant]
     Route: 048
     Dates: start: 20080810, end: 20090223

REACTIONS (1)
  - IN-STENT CORONARY ARTERY RESTENOSIS [None]
